APPROVED DRUG PRODUCT: NALOXONE HYDROCHLORIDE AND PENTAZOCINE HYDROCHLORIDE
Active Ingredient: NALOXONE HYDROCHLORIDE; PENTAZOCINE HYDROCHLORIDE
Strength: EQ 0.5MG BASE;EQ 50MG BASE
Dosage Form/Route: TABLET;ORAL
Application: A074736 | Product #001 | TE Code: AB
Applicant: WATSON LABORATORIES INC
Approved: Jan 21, 1997 | RLD: No | RS: Yes | Type: RX